FAERS Safety Report 4616679-5 (Version None)
Quarter: 2005Q1

REPORT INFORMATION
  Report Type: 
  Country: None (occurrence: None)
  Receive Date: 20050321
  Receipt Date: 20050309
  Transmission Date: 20050727
  Serious: Yes (Other)
  Sender: FDA-Public Use
  Company Number: 2005045106

PATIENT
  Age: 72 Year
  Sex: Female

DRUGS (2)
  1. CLINDAMYCIN PHOSPHATE [Suspect]
     Indication: CELLULITIS
     Dosage: 1800 MG (450 MG, 1 IN 6 HR), INTRAVENOUS
     Route: 042
     Dates: start: 20050223, end: 20050224
  2. BENDROFLUMETHIAZIDE (BENDROFLUMETHIAZIDE) [Concomitant]

REACTIONS (1)
  - ORAL MUCOSAL BLISTERING [None]
